FAERS Safety Report 8810108 (Version 1)
Quarter: 2012Q4

REPORT INFORMATION
  Report Type: Report from Study
  Country: GB (occurrence: GB)
  Receive Date: 20120926
  Receipt Date: 20120926
  Transmission Date: 20130627
  Serious: Yes (Other)
  Sender: FDA-Public Use
  Company Number: GB-GENZYME-MOZO-1000750

PATIENT
  Age: 60 Year
  Sex: Male
  Weight: 87.5 kg

DRUGS (9)
  1. MOZOBIL [Suspect]
     Indication: ACUTE MYELOID LEUKAEMIA
     Dosage: 240 mcg/kg, dosage interval:1 day
     Route: 058
     Dates: start: 20111122, end: 20111126
  2. EVOLTRA [Suspect]
     Indication: ACUTE MYELOID LEUKAEMIA
     Dosage: 20 mg/m2, dosage interval:1 day
     Route: 041
     Dates: start: 20111122, end: 20111126
  3. DAUNORUBICIN HYDROCHLORIDE [Suspect]
     Indication: ACUTE MYELOID LEUKAEMIA
     Dosage: 50 mg/m2, dosage interval:1 day
     Route: 041
     Dates: start: 20111122, end: 20111126
  4. GLICLAZIDE [Concomitant]
     Indication: TYPE 2 DIABETES MELLITUS
     Dosage: 80 mg, dosage interval:2 days
     Route: 048
     Dates: start: 2009
  5. GLUCOPHAGE [Concomitant]
     Indication: TYPE 2 DIABETES MELLITUS
     Dosage: 2 g, dosage interval:1 day
     Route: 048
     Dates: start: 2009
  6. ATORVASTATIN [Concomitant]
     Indication: BLOOD CHOLESTEROL INCREASED
     Dosage: 40 mg, dosage interval: 1 day
     Route: 048
     Dates: start: 20111121
  7. ACICLOVIR [Concomitant]
     Indication: ANTIVIRAL TREATMENT
     Dosage: 200 mg, dosage interval: 3 days
     Route: 048
     Dates: start: 20111121
  8. FLUCONAZOLE [Concomitant]
     Indication: ANTIFUNGAL TREATMENT
     Dosage: 50 mg, dosage interval:1 day
     Route: 048
     Dates: start: 20111121
  9. OMEPRAZOLE [Concomitant]
     Indication: EPIGASTRIC DISCOMFORT
     Dosage: 20 mg, dosage interval:1 day
     Route: 048
     Dates: start: 20111121

REACTIONS (2)
  - Myelodysplastic syndrome [Unknown]
  - Neutropenia [Not Recovered/Not Resolved]
